FAERS Safety Report 25859378 (Version 1)
Quarter: 2025Q3

REPORT INFORMATION
  Report Type: Spontaneous
  Country: US (occurrence: US)
  Receive Date: 20250929
  Receipt Date: 20250929
  Transmission Date: 20251021
  Serious: No
  Sender: PFIZER
  Company Number: US-PFIZER INC-202500189768

PATIENT
  Age: 11 Year
  Sex: Female
  Weight: 39.01 kg

DRUGS (1)
  1. GENOTROPIN [Suspect]
     Active Substance: SOMATROPIN
     Indication: Turner^s syndrome
     Dosage: 2.2 MG, DAILY
     Dates: start: 202407

REACTIONS (3)
  - Injection site bruising [Unknown]
  - Needle issue [Unknown]
  - Product administered at inappropriate site [Unknown]
